FAERS Safety Report 9202335 (Version 1)
Quarter: 2013Q2

REPORT INFORMATION
  Report Type: Spontaneous
  Country: US (occurrence: US)
  Receive Date: 20130401
  Receipt Date: 20130401
  Transmission Date: 20140414
  Serious: Yes (Hospitalization)
  Sender: FDA-Public Use
  Company Number: US-UCBSA-068735

PATIENT
  Age: 27 Year
  Sex: Female
  Weight: 81.64 kg

DRUGS (2)
  1. CIMZIA [Suspect]
     Indication: CROHN^S DISEASE
     Dates: start: 20120727, end: 20120926
  2. IMURAN [Concomitant]

REACTIONS (2)
  - Abscess [Unknown]
  - Decreased immune responsiveness [Recovered/Resolved]
